FAERS Safety Report 5466752-7 (Version None)
Quarter: 2007Q3

REPORT INFORMATION
  Report Type: 
  Country: None (occurrence: None)
  Receive Date: 20070925
  Receipt Date: 20070911
  Transmission Date: 20080115
  Serious: Yes (Hospitalization)
  Sender: FDA-Public Use
  Company Number: GB-ELI_LILLY_AND_COMPANY-GB200709002423

PATIENT
  Age: 36 Year
  Sex: Female

DRUGS (2)
  1. OLANZAPINE [Suspect]
     Indication: MANIA
     Dosage: 5 MG, EACH MORNING
     Dates: start: 20070801
  2. OLANZAPINE [Suspect]
     Dosage: 20 MG, EACH EVENING
     Dates: start: 20070801

REACTIONS (3)
  - HOSPITALISATION [None]
  - OVERDOSE [None]
  - WEIGHT INCREASED [None]
